FAERS Safety Report 15384390 (Version 1)
Quarter: 2018Q3

REPORT INFORMATION
  Report Type: Spontaneous
  Country: US (occurrence: US)
  Receive Date: 20180907
  Receipt Date: 20180907
  Transmission Date: 20181010
  Serious: Yes (Life-Threatening)
  Sender: FDA-Public Use
  Company Number: None

PATIENT
  Age: 50 Year
  Sex: Male
  Weight: 110.25 kg

DRUGS (6)
  1. CARDIO IDOL [Concomitant]
  2. GLIMPIZE [Concomitant]
  3. TYLENOL [Suspect]
     Active Substance: ACETAMINOPHEN
     Indication: INFLUENZA
     Dosage: ?          QUANTITY:1 TABLET(S);?
     Route: 048
     Dates: start: 20160910, end: 20170810
  4. VICTOZA PRO VASTATIN [Concomitant]
  5. BAYER [Concomitant]
     Active Substance: ASPIRIN
  6. ENTRESTRO [Concomitant]

REACTIONS (2)
  - Atrial fibrillation [None]
  - Cardiomyopathy [None]

NARRATIVE: CASE EVENT DATE: 20180905
